FAERS Safety Report 6610572-4 (Version None)
Quarter: 2010Q1

REPORT INFORMATION
  Report Type: 
  Country: None (occurrence: None)
  Receive Date: 20100302
  Receipt Date: 20100217
  Transmission Date: 20100710
  Serious: Yes (Hospitalization, Other)
  Sender: FDA-Public Use
  Company Number: CA-GENENTECH-292140

PATIENT
  Sex: Male
  Weight: 75 kg

DRUGS (5)
  1. XOLAIR [Suspect]
     Indication: ASTHMA
     Dosage: 375 MG, Q2W
     Route: 058
     Dates: start: 20090813
  2. XOLAIR [Suspect]
     Dosage: 375 MG, Q2W
  3. XOLAIR [Suspect]
     Dosage: 375 MG, Q2W
  4. XOLAIR [Suspect]
     Dosage: 375 MG, Q2W
     Route: 058
     Dates: start: 20091217
  5. XOLAIR [Suspect]
     Dosage: 375 MG, Q2W
     Dates: start: 20100117

REACTIONS (9)
  - ASTHMA [None]
  - BACTERIAL INFECTION [None]
  - COUGH [None]
  - DYSPNOEA [None]
  - HAEMORRHAGE [None]
  - POST PROCEDURAL COMPLICATION [None]
  - PULMONARY CONGESTION [None]
  - RESPIRATORY TRACT INFECTION [None]
  - SPUTUM PURULENT [None]
